FAERS Safety Report 5584456-7 (Version None)
Quarter: 2008Q1

REPORT INFORMATION
  Report Type: 
  Country: None (occurrence: None)
  Receive Date: 20080103
  Receipt Date: 20071218
  Transmission Date: 20080703
  Serious: Yes (Hospitalization)
  Sender: FDA-Public Use
  Company Number: 8028483

PATIENT
  Age: 24 Year
  Sex: Female
  Weight: 55 kg

DRUGS (6)
  1. KEPPRA [Suspect]
     Indication: EPILEPSY
     Dosage: PO
     Route: 048
     Dates: start: 20071117, end: 20071126
  2. KEPPRA [Suspect]
     Indication: SPINOCEREBELLAR ATAXIA
     Dosage: PO
     Route: 048
     Dates: start: 20071117, end: 20071126
  3. LEVOTONINE [Concomitant]
  4. MYSOLINE [Concomitant]
  5. AVLOCARDYL                    /00030001/ [Concomitant]
  6. URBANYL [Concomitant]

REACTIONS (3)
  - CONDITION AGGRAVATED [None]
  - DELIRIUM [None]
  - PSYCHOTIC DISORDER [None]
